FAERS Safety Report 12656173 (Version 1)
Quarter: 2016Q3

REPORT INFORMATION
  Report Type: Spontaneous
  Country: US (occurrence: US)
  Receive Date: 20160816
  Receipt Date: 20160816
  Transmission Date: 20161109
  Serious: No
  Sender: FDA-Public Use
  Company Number: US-BAYER-2016-150107

PATIENT
  Age: 64 Year
  Sex: Female

DRUGS (1)
  1. ALEVE [Suspect]
     Active Substance: NAPROXEN SODIUM
     Indication: ARTHRITIS
     Dosage: UNK UNK, PRN
     Route: 048
     Dates: end: 201606

REACTIONS (6)
  - Nasal congestion [Recovered/Resolved]
  - Discomfort [Recovered/Resolved]
  - Incorrect dose administered [None]
  - Constipation [None]
  - Therapeutic response unexpected [None]
  - Product use issue [Unknown]

NARRATIVE: CASE EVENT DATE: 20160801
